FAERS Safety Report 11800202 (Version 2)
Quarter: 2015Q4

REPORT INFORMATION
  Report Type: Spontaneous
  Country: AR (occurrence: AR)
  Receive Date: 20151203
  Receipt Date: 20151224
  Transmission Date: 20160305
  Serious: Yes (Other)
  Sender: FDA-Public Use
  Company Number: AR-AMGEN-ARGSP2015127536

PATIENT
  Age: 75 Year
  Sex: Female

DRUGS (5)
  1. DIOSMINA                           /00426001/ [Concomitant]
  2. EXFORGE [Concomitant]
     Active Substance: AMLODIPINE BESYLATE\VALSARTAN
  3. ENBREL [Suspect]
     Active Substance: ETANERCEPT
     Indication: PSORIATIC ARTHROPATHY
     Dosage: 50 MG, WEEKLY
     Route: 065
     Dates: start: 20080327
  4. METFORMIN [Concomitant]
     Active Substance: METFORMIN HYDROCHLORIDE
  5. ASPIRINETAS [Concomitant]
     Active Substance: ASPIRIN

REACTIONS (5)
  - Erysipelas [Not Recovered/Not Resolved]
  - Pain [Recovered/Resolved]
  - Limb discomfort [Not Recovered/Not Resolved]
  - Pyrexia [Recovered/Resolved]
  - Abasia [Recovering/Resolving]

NARRATIVE: CASE EVENT DATE: 201511
